FAERS Safety Report 4678203-0 (Version None)
Quarter: 2005Q2

REPORT INFORMATION
  Report Type: 
  Country: None (occurrence: None)
  Receive Date: 20050527
  Receipt Date: 20050518
  Transmission Date: 20051028
  Serious: Yes (Hospitalization)
  Sender: FDA-Public Use
  Company Number: 2005051096

PATIENT
  Age: 71 Year
  Sex: Female
  Weight: 61 kg

DRUGS (9)
  1. UNASYN [Suspect]
     Indication: INFECTION PROPHYLAXIS
     Dosage: 1.5 GRAM (1.5 GRAM, 1 IN 1 D), INTRAVENOUS
     Route: 042
     Dates: start: 20050302, end: 20050302
  2. CEFDINIR [Suspect]
     Indication: INFECTION PROPHYLAXIS
     Dosage: 300 MG (100 MG, TID), ORAL
     Route: 048
     Dates: start: 20050302, end: 20050305
  3. MUCOSAL (ACETYLCYSTEINE) [Concomitant]
  4. SLO-BID [Concomitant]
  5. MONTELUKAST SODIUM (MONTELUKAST SODIUM) [Concomitant]
  6. RABEPRAZOLE SODIUM [Concomitant]
  7. SOLANTAL (TIARAMIDE HYDROCHLORIDE) [Concomitant]
  8. BETAMETHASONE [Concomitant]
  9. XYLOCAINE [Concomitant]

REACTIONS (1)
  - DRUG ERUPTION [None]
